FAERS Safety Report 4436946-8 (Version None)
Quarter: 2004Q3

REPORT INFORMATION
  Report Type: 
  Country: None (occurrence: None)
  Receive Date: 20040726
  Receipt Date: 20040503
  Transmission Date: 20050211
  Serious: No
  Sender: FDA-Public Use
  Company Number: USA040362940

PATIENT
  Age: 74 Year
  Sex: Female
  Weight: 49 kg

DRUGS (3)
  1. FORTEO [Suspect]
     Indication: OSTEOPOROSIS
     Dosage: 20 UG/1 DAY
     Dates: start: 20031114
  2. CALCIUM WITH VITAMIN D [Concomitant]
  3. MIRALAX [Concomitant]

REACTIONS (2)
  - ARTHRALGIA [None]
  - FEELING ABNORMAL [None]
